FAERS Safety Report 10046659 (Version 2)
Quarter: 2014Q3

REPORT INFORMATION
  Report Type: Spontaneous
  Country: US (occurrence: None)
  Receive Date: 20140326
  Receipt Date: 20140709
  Transmission Date: 20150326
  Serious: Yes (Hospitalization, Disabling, Other)
  Sender: FDA-Public Use
  Company Number: 2011US000383

PATIENT
  Age: 55 Year
  Sex: Female
  Weight: 119.8 kg

DRUGS (15)
  1. URSODIOL (URSODIOL) [Concomitant]
  2. NOVOMIX (NOVOLOG MIX) [Concomitant]
  3. CALCIUM (CALCIUM CARBONATE, CALCIUM LACTATE GLUCONATE) [Concomitant]
  4. PLAVIX (CLOPIDOGREL BISULFATE) [Concomitant]
  5. PONATINIB (AP24534) TABLET [Suspect]
     Active Substance: PONATINIB
     Indication: CHRONIC MYELOID LEUKAEMIA
     Route: 048
     Dates: start: 20110211, end: 20111020
  6. KEFLEX (CEFALEXIN MONOHYDRATE) [Concomitant]
  7. OMEGA 3 (FISH OIL) [Concomitant]
     Active Substance: OMEGA-3 FATTY ACIDS
  8. ASPIRIN (ACETYLSALICYLIC ACID) [Concomitant]
     Active Substance: ASPIRIN
  9. COMBIGAN (BRIMONIDINE TARTRATE, TIMOLOL MALEATE) [Concomitant]
  10. GABAPENTIN (GABAPENTIN) [Concomitant]
     Active Substance: GABAPENTIN
  11. OXYCODONE HCL (OXYCODONE HYDROCHLORIDE) [Concomitant]
  12. AMRIX (CYCLOBENZAPRINE HYDROCHLORIDE) [Concomitant]
  13. LEVOTHYROXINE SODIUIM (LEVOTHYROXINE SODIUM) [Concomitant]
  14. NOVOLOG [Concomitant]
     Active Substance: INSULIN ASPART
  15. OXYCOTIN ( OXYCODONE HYDROCHLORIDE) [Concomitant]

REACTIONS (6)
  - Gangrene [None]
  - Osteomyelitis [None]
  - Blood glucose increased [None]
  - Foot amputation [None]
  - Soft tissue infection [None]
  - Dry gangrene [None]

NARRATIVE: CASE EVENT DATE: 20111020
